FAERS Safety Report 14588675 (Version 2)
Quarter: 2018Q2

REPORT INFORMATION
  Report Type: Spontaneous
  Country: US (occurrence: US)
  Receive Date: 20180301
  Receipt Date: 20180417
  Transmission Date: 20180711
  Serious: No
  Sender: FDA-Public Use
  Company Number: US-GLAXOSMITHKLINE-US2018033720

PATIENT
  Sex: Male

DRUGS (2)
  1. VENTOLIN HFA [Suspect]
     Active Substance: ALBUTEROL SULFATE
     Indication: DYSPNOEA
  2. VENTOLIN HFA [Suspect]
     Active Substance: ALBUTEROL SULFATE
     Indication: LUNG DISORDER
     Dosage: UNK

REACTIONS (6)
  - Feeling abnormal [Unknown]
  - Nervousness [Unknown]
  - Feeling jittery [Unknown]
  - Psychomotor hyperactivity [Unknown]
  - Product quality issue [Unknown]
  - Underdose [Unknown]
